FAERS Safety Report 12872751 (Version 4)
Quarter: 2016Q4

REPORT INFORMATION
  Report Type: Spontaneous
  Country: CA (occurrence: CA)
  Receive Date: 20161021
  Receipt Date: 20161121
  Transmission Date: 20170207
  Serious: Yes (Other)
  Sender: FDA-Public Use
  Company Number: PHHY2016CA143596

PATIENT
  Sex: Male
  Weight: 132 kg

DRUGS (3)
  1. CELEBREX [Concomitant]
     Active Substance: CELECOXIB
     Indication: PRODUCT USED FOR UNKNOWN INDICATION
     Dosage: 200 MG, BID
     Route: 065
  2. DICLOFENAC [Suspect]
     Active Substance: DICLOFENAC
     Indication: PRODUCT USED FOR UNKNOWN INDICATION
     Dosage: 50 MG, BID
     Route: 065
  3. NAPROXEN. [Concomitant]
     Active Substance: NAPROXEN
     Indication: PRODUCT USED FOR UNKNOWN INDICATION
     Dosage: 500 MG, BID
     Route: 065

REACTIONS (7)
  - Therapy non-responder [Unknown]
  - Viral infection [Unknown]
  - Back pain [Unknown]
  - Musculoskeletal stiffness [Unknown]
  - C-reactive protein abnormal [Unknown]
  - Ankylosing spondylitis [Unknown]
  - Spinal pain [Unknown]

NARRATIVE: CASE EVENT DATE: 2015
